FAERS Safety Report 4612913-6 (Version None)
Quarter: 2005Q1

REPORT INFORMATION
  Report Type: 
  Country: None (occurrence: None)
  Receive Date: 20050318
  Receipt Date: 20050308
  Transmission Date: 20050727
  Serious: Yes (Hospitalization)
  Sender: FDA-Public Use
  Company Number: 396642

PATIENT
  Age: 74 Year
  Sex: Female

DRUGS (9)
  1. CARVEDILOL [Suspect]
     Indication: CARDIAC FAILURE
     Dosage: 12.5MG TWICE PER DAY
     Route: 048
     Dates: start: 20041101
  2. ISOPHANE INSULIN [Suspect]
     Indication: ILL-DEFINED DISORDER
     Dosage: 46U PER DAY
     Route: 065
  3. PRAVASTATIN [Suspect]
     Indication: ILL-DEFINED DISORDER
     Dosage: 20MG PER DAY
     Route: 065
  4. FOSINOPRIL [Suspect]
     Indication: ILL-DEFINED DISORDER
     Dosage: 10MG PER DAY
     Route: 048
  5. DEXTROPROPOXYPHENE HYDROCHLORIDE + PARACETAMOL [Suspect]
     Indication: ILL-DEFINED DISORDER
     Dosage: 1U WEEKLY
     Route: 048
  6. CLOPIDOGREL [Suspect]
     Indication: ILL-DEFINED DISORDER
     Dosage: 1U PER DAY
     Route: 048
  7. FUROSEMIDE [Suspect]
     Indication: ILL-DEFINED DISORDER
     Dosage: 60MG PER DAY
     Route: 048
  8. REPAGLINIDE [Suspect]
     Indication: ILL-DEFINED DISORDER
     Dosage: 2MG PER DAY
     Route: 065
  9. LYSINE ASPIRIN [Suspect]
     Indication: ILL-DEFINED DISORDER
     Dosage: 75MG PER DAY
     Route: 065

REACTIONS (4)
  - ALANINE AMINOTRANSFERASE INCREASED [None]
  - ASPARTATE AMINOTRANSFERASE INCREASED [None]
  - GAMMA-GLUTAMYLTRANSFERASE INCREASED [None]
  - HEPATOMEGALY [None]
